FAERS Safety Report 8193644-5 (Version None)
Quarter: 2012Q1

REPORT INFORMATION
  Report Type: 
  Country: None (occurrence: None)
  Receive Date: 20120308
  Receipt Date: 20120228
  Transmission Date: 20120608
  Serious: Yes (Other)
  Sender: FDA-Public Use
  Company Number: CA-JNJFOC-20120214616

PATIENT
  Sex: Female
  Weight: 65 kg

DRUGS (10)
  1. REMICADE [Suspect]
     Indication: CROHN'S DISEASE
     Route: 042
     Dates: start: 20110523
  2. VITAMIN B-12 [Concomitant]
     Route: 048
  3. BLOOD PRESSURE MEDICATION NOS [Concomitant]
     Route: 065
  4. BISOPROLOL FUMARATE [Concomitant]
     Route: 048
  5. CALCIUM [Concomitant]
     Route: 048
  6. IRON SUPPLEMENT [Concomitant]
     Route: 048
  7. IMURAN [Concomitant]
     Dosage: 2.5 TABS ONCE A DAY
     Route: 048
  8. FERROUS FUMARATE [Concomitant]
     Route: 048
  9. VITAMIN D [Concomitant]
     Route: 048
  10. AMLODIPINE [Concomitant]
     Route: 048

REACTIONS (2)
  - RECTAL ABSCESS [None]
  - ABSCESS DRAINAGE [None]
